FAERS Safety Report 14874335 (Version 5)
Quarter: 2019Q4

REPORT INFORMATION
  Report Type: Spontaneous
  Country: US (occurrence: US)
  Receive Date: 20180510
  Receipt Date: 20191022
  Transmission Date: 20200122
  Serious: Yes (Other)
  Sender: FDA-Public Use
  Company Number: US-GLAXOSMITHKLINE-US2018GSK082888

PATIENT
  Sex: Female

DRUGS (8)
  1. PREVACID [Suspect]
     Active Substance: LANSOPRAZOLE
     Indication: PRODUCT USED FOR UNKNOWN INDICATION
     Dosage: UNK
     Route: 065
  2. PANTOPRAZOLE [Suspect]
     Active Substance: PANTOPRAZOLE
     Indication: PRODUCT USED FOR UNKNOWN INDICATION
     Dosage: 40 MG, PRN
     Route: 048
  3. OMEPRAZOLE. [Suspect]
     Active Substance: OMEPRAZOLE
     Indication: GASTROOESOPHAGEAL REFLUX DISEASE
     Dosage: UNK
     Route: 065
  4. OMEPRAZOLE. [Suspect]
     Active Substance: OMEPRAZOLE
     Indication: DYSPEPSIA
  5. PREVACID [Suspect]
     Active Substance: LANSOPRAZOLE
     Indication: GASTROOESOPHAGEAL REFLUX DISEASE
     Dosage: UNK
     Route: 065
  6. PREVACID [Suspect]
     Active Substance: LANSOPRAZOLE
     Indication: DYSPEPSIA
  7. LANSOPRAZOLE. [Suspect]
     Active Substance: LANSOPRAZOLE
     Indication: DYSPEPSIA
  8. LANSOPRAZOLE. [Suspect]
     Active Substance: LANSOPRAZOLE
     Indication: GASTROOESOPHAGEAL REFLUX DISEASE
     Dosage: UNK
     Route: 065

REACTIONS (24)
  - Renal injury [Unknown]
  - End stage renal disease [Not Recovered/Not Resolved]
  - Chronic kidney disease-mineral and bone disorder [Unknown]
  - Rebound effect [Unknown]
  - Dialysis [Unknown]
  - Nephropathy [Unknown]
  - Dysuria [Unknown]
  - Renal disorder [Unknown]
  - Urinary tract infection [Unknown]
  - Essential hypertension [Unknown]
  - Acute kidney injury [Unknown]
  - Hypertensive nephropathy [Unknown]
  - Renal impairment [Unknown]
  - Glomerulonephritis [Unknown]
  - Renal failure [Unknown]
  - Hyperchlorhydria [Unknown]
  - Diabetic nephropathy [Unknown]
  - Device dependence [Unknown]
  - Ureteral disorder [Unknown]
  - Chronic kidney disease [Unknown]
  - Renal atrophy [Unknown]
  - Nephrogenic anaemia [Unknown]
  - Type 1 diabetes mellitus [Unknown]
  - Haemodialysis [Unknown]
